FAERS Safety Report 24832065 (Version 1)
Quarter: 2025Q1

REPORT INFORMATION
  Report Type: Spontaneous
  Country: IL (occurrence: IL)
  Receive Date: 20250110
  Receipt Date: 20250110
  Transmission Date: 20250408
  Serious: Yes (Other)
  Sender: AMGEN
  Company Number: IL-AMGEN-ISRSP2025001533

PATIENT
  Age: 46 Year
  Sex: Male

DRUGS (4)
  1. ADALIMUMAB [Suspect]
     Active Substance: ADALIMUMAB
     Indication: Cardiac sarcoidosis
     Route: 065
  2. PREDNISONE [Concomitant]
     Active Substance: PREDNISONE
  3. METHOTREXATE [Concomitant]
     Active Substance: METHOTREXATE
  4. BISOPROLOL [Concomitant]
     Active Substance: BISOPROLOL

REACTIONS (5)
  - Device inappropriate shock delivery [Unknown]
  - Ventricular tachycardia [Unknown]
  - Myocardial fibrosis [Unknown]
  - Drug effective for unapproved indication [Unknown]
  - Off label use [Unknown]
